FAERS Safety Report 16637249 (Version 3)
Quarter: 2019Q3

REPORT INFORMATION
  Report Type: Spontaneous
  Country: US (occurrence: US)
  Receive Date: 20190726
  Receipt Date: 20190827
  Transmission Date: 20191004
  Serious: Yes (Other)
  Sender: FDA-Public Use
  Company Number: US-BAYER-2019-140148

PATIENT
  Age: 34 Year
  Sex: Female
  Weight: 66.21 kg

DRUGS (5)
  1. MIRENA [Suspect]
     Active Substance: LEVONORGESTREL
     Indication: CONTRACEPTION
     Dosage: 20 MCG/24HR, CONT
     Route: 015
  2. MIRENA [Suspect]
     Active Substance: LEVONORGESTREL
     Indication: CONTRACEPTION
     Dosage: 20 MCG/24HR, CONT
     Route: 015
     Dates: start: 20170310, end: 20190705
  3. ZOLOFT [Concomitant]
     Active Substance: SERTRALINE HYDROCHLORIDE
     Dosage: 100 MG
  4. LAMICTAL [Concomitant]
     Active Substance: LAMOTRIGINE
  5. MIRENA [Suspect]
     Active Substance: LEVONORGESTREL
     Indication: CONTRACEPTION

REACTIONS (8)
  - Pelvic fluid collection [None]
  - Device difficult to use [None]
  - Vaginal infection [None]
  - Coital bleeding [None]
  - Procedural haemorrhage [None]
  - Device expulsion [Recovered/Resolved]
  - Mass [None]
  - Vaginal discharge [None]

NARRATIVE: CASE EVENT DATE: 20190705
